FAERS Safety Report 6594859-X (Version None)
Quarter: 2010Q1

REPORT INFORMATION
  Report Type: 
  Country: None (occurrence: None)
  Receive Date: 20100222
  Receipt Date: 20100209
  Transmission Date: 20100710
  Serious: Yes (Life-Threatening, Other)
  Sender: FDA-Public Use
  Company Number: US-PFIZER INC-2010020105

PATIENT
  Age: 39 Year
  Sex: Female

DRUGS (3)
  1. SERTRALINE HCL [Suspect]
     Dosage: 100 MG DAILY
  2. FENTANYL [Interacting]
     Indication: SEDATION
     Dosage: 50 MCG (TWO DOSES OF 25 MCG )
  3. MIDAZOLAM [Concomitant]
     Indication: SEDATION
     Dosage: 2 MG (TWO DOSES OF 1MG)

REACTIONS (7)
  - AMMONIA INCREASED [None]
  - CONVULSION [None]
  - DRUG INTERACTION [None]
  - MALLORY-WEISS SYNDROME [None]
  - PYREXIA [None]
  - RHABDOMYOLYSIS [None]
  - SEROTONIN SYNDROME [None]
